FAERS Safety Report 21354651 (Version 1)
Quarter: 2022Q3

REPORT INFORMATION
  Report Type: Spontaneous
  Country: US (occurrence: None)
  Receive Date: 20220919
  Receipt Date: 20220919
  Transmission Date: 20221027
  Serious: Yes (Disabling)
  Sender: FDA-Public Use
  Company Number: None

PATIENT
  Age: 61 Year
  Sex: Female
  Weight: 139 kg

DRUGS (19)
  1. JARDIANCE [Suspect]
     Active Substance: EMPAGLIFLOZIN
     Indication: Type 2 diabetes mellitus
     Route: 048
     Dates: start: 20220909, end: 20220916
  2. AZITHROMYCIN [Concomitant]
     Active Substance: AZITHROMYCIN
  3. PROPRANOLOL [Concomitant]
     Active Substance: PROPRANOLOL HYDROCHLORIDE
  4. METOCLOPRAMIDE [Concomitant]
     Active Substance: METOCLOPRAMIDE
  5. HYDROMORPHONE [Concomitant]
     Active Substance: HYDROMORPHONE
  6. ATORVASTATIN [Concomitant]
     Active Substance: ATORVASTATIN
  7. METOPROLOL SUCCINATE [Concomitant]
     Active Substance: METOPROLOL SUCCINATE
  8. DILTIAZEM [Concomitant]
     Active Substance: DILTIAZEM
  9. ADVAIR DISKUS  inhalation powder [Concomitant]
  10. LOSARTAN [Concomitant]
     Active Substance: LOSARTAN
  11. albuterol CFC free inhalation aerosol [Concomitant]
  12. POTASSIUM CHLORIDE [Concomitant]
     Active Substance: POTASSIUM CHLORIDE
  13. FUROSEMIDE [Concomitant]
     Active Substance: FUROSEMIDE
  14. PRIMIDONE [Concomitant]
     Active Substance: PRIMIDONE
  15. naloxone nasal spray [Concomitant]
  16. OMEPRAZOLE [Concomitant]
     Active Substance: OMEPRAZOLE
  17. HYDROCORTISONE [Concomitant]
     Active Substance: HYDROCORTISONE
  18. ARMOUR THYROID [Concomitant]
     Active Substance: THYROID, PORCINE
  19. LEVOTHYROXINE [Concomitant]
     Active Substance: LEVOTHYROXINE

REACTIONS (8)
  - Thirst [None]
  - Pollakiuria [None]
  - Dizziness [None]
  - Urinary incontinence [None]
  - Fall [None]
  - Arthralgia [None]
  - Muscle spasms [None]
  - Muscle spasms [None]

NARRATIVE: CASE EVENT DATE: 20220918
